FAERS Safety Report 16687487 (Version 1)
Quarter: 2019Q4

REPORT INFORMATION
  Report Type: Spontaneous
  Country: US (occurrence: US)
  Receive Date: 20190808
  Receipt Date: 20190808
  Transmission Date: 20200122
  Serious: Yes (Other)
  Sender: FDA-Public Use
  Company Number: None

PATIENT
  Age: 72 Year
  Sex: Male

DRUGS (13)
  1. LEVOFLOXACIN TAB 500 MG [Concomitant]
  2. OXYCODONE/APAP 5-325 [Concomitant]
  3. POT CL MICRO TAB 20 MEQ ER [Concomitant]
  4. AMLODIPINE TAB 5 MG [Concomitant]
  5. TRAMADOL HCL TAB 50 MG [Concomitant]
  6. TAMSULOSIN CAP 0.4 MG [Concomitant]
  7. NAC 600 CAP [Concomitant]
  8. TASIGNA [Suspect]
     Active Substance: NILOTINIB
     Indication: CHRONIC MYELOID LEUKAEMIA
     Route: 048
     Dates: start: 20180110
  9. CLINDAMYCIN CAP 300 MG [Concomitant]
  10. NYSTOP POW 100000 [Concomitant]
  11. FLUCONAZOLE TAB 250 MG [Concomitant]
  12. CLOPIDOGREL TAB 75 MG [Concomitant]
  13. FUROSEMIDE TAB 40 MG [Concomitant]

REACTIONS (2)
  - Hyperglycaemia [None]
  - Leg amputation [None]
